FAERS Safety Report 4344054-X (Version None)
Quarter: 2004Q2

REPORT INFORMATION
  Report Type: 
  Country: None (occurrence: None)
  Receive Date: 20040422
  Receipt Date: 20040217
  Transmission Date: 20050107
  Serious: Yes (Hospitalization)
  Sender: FDA-Public Use
  Company Number: US-GLAXOSMITHKLINE-A0498521A

PATIENT
  Age: 71 Year
  Sex: Male
  Weight: 114.5 kg

DRUGS (9)
  1. COREG [Suspect]
     Indication: HYPERTENSION
     Route: 048
  2. AVANDIA [Concomitant]
     Dosage: 8MG PER DAY
     Route: 048
  3. GLUCOTROL XL [Concomitant]
     Dosage: 5MG PER DAY
     Route: 048
  4. GLUCOPHAGE [Concomitant]
     Route: 048
  5. LISINOPRIL AND HYDROCHLOROTHIAZIDE [Concomitant]
     Indication: HYPERTENSION
     Dosage: 1TAB PER DAY
     Route: 048
  6. LASIX [Concomitant]
     Dosage: 40MG PER DAY
     Route: 048
  7. LIPITOR [Concomitant]
     Dosage: 40MG PER DAY
     Route: 048
  8. COUMADIN [Concomitant]
     Route: 048
  9. BEXTRA [Concomitant]
     Route: 048

REACTIONS (2)
  - ATRIAL FLUTTER [None]
  - DYSPNOEA [None]
